FAERS Safety Report 25771247 (Version 1)
Quarter: 2025Q3

REPORT INFORMATION
  Report Type: Spontaneous
  Country: US (occurrence: US)
  Receive Date: 20250908
  Receipt Date: 20250908
  Transmission Date: 20251021
  Serious: No
  Sender: DOMPE FARMACEUTICI
  Company Number: US-FARMAPROD-202504-1088

PATIENT
  Age: 64 Year
  Sex: Female

DRUGS (25)
  1. OXERVATE [Suspect]
     Active Substance: CENEGERMIN-BKBJ
     Indication: Illness
     Route: 047
     Dates: start: 20250325
  2. COMPAZINE [Concomitant]
     Active Substance: PROCHLORPERAZINE MALEATE
  3. ONDANSETRON HYDROCHLORIDE [Concomitant]
     Active Substance: ONDANSETRON HYDROCHLORIDE
  4. SYMBICORT [Concomitant]
     Active Substance: BUDESONIDE\FORMOTEROL FUMARATE DIHYDRATE
  5. BUDESONIDE [Concomitant]
     Active Substance: BUDESONIDE
  6. ALBUTEROL SULFATE [Concomitant]
     Active Substance: ALBUTEROL SULFATE
  7. BACTRIM DS [Concomitant]
     Active Substance: SULFAMETHOXAZOLE\TRIMETHOPRIM
  8. ACYCLOVIR [Concomitant]
     Active Substance: ACYCLOVIR
  9. PROTONIX [Concomitant]
     Active Substance: PANTOPRAZOLE SODIUM
  10. MONTELUKAST SODIUM [Concomitant]
     Active Substance: MONTELUKAST SODIUM
  11. REZUROCK [Concomitant]
     Active Substance: BELUMOSUDIL
  12. MORPHINE SULFATE [Concomitant]
     Active Substance: MORPHINE SULFATE
  13. GABAPENTIN [Concomitant]
     Active Substance: GABAPENTIN
  14. POSACONAZOLE [Concomitant]
     Active Substance: POSACONAZOLE
  15. TACROLIMUS [Concomitant]
     Active Substance: TACROLIMUS
  16. AZITHROMYCIN [Concomitant]
     Active Substance: AZITHROMYCIN
  17. PREDNISONE [Concomitant]
     Active Substance: PREDNISONE
  18. ACETYLCYSTEINE [Concomitant]
     Active Substance: ACETYLCYSTEINE
  19. ISOTONIC SODIUM CHLORIDE SOLUTION [Concomitant]
     Active Substance: SODIUM CHLORIDE
  20. PREDNISOLONE [Concomitant]
     Active Substance: PREDNISOLONE
  21. TACROLIMUS [Concomitant]
     Active Substance: TACROLIMUS
  22. VANCOMYCIN HYDROCHLORIDE [Concomitant]
     Active Substance: VANCOMYCIN HYDROCHLORIDE
  23. MOXIFLOXACIN [Concomitant]
     Active Substance: MOXIFLOXACIN
  24. PREDNISOLONE ACETATE [Concomitant]
     Active Substance: PREDNISOLONE ACETATE
  25. VANCOMYCIN HYDROCHLORIDE [Concomitant]
     Active Substance: VANCOMYCIN HYDROCHLORIDE

REACTIONS (3)
  - Eye pain [Unknown]
  - Eye swelling [Unknown]
  - Product dose omission issue [Unknown]

NARRATIVE: CASE EVENT DATE: 20250326
